FAERS Safety Report 5592319-6 (Version None)
Quarter: 2008Q1

REPORT INFORMATION
  Report Type: 
  Country: None (occurrence: None)
  Receive Date: 20080111
  Receipt Date: 20080103
  Transmission Date: 20080703
  Serious: Yes (Hospitalization, Other)
  Sender: FDA-Public Use
  Company Number: 2007US002950

PATIENT
  Age: 53 Year
  Sex: Male

DRUGS (2)
  1. PROGRAF                                  (TACROLIMUS) [Suspect]
     Indication: RENAL TRANSPLANT
     Dosage: 1 MG, UID/QD,ORAL
     Route: 048
  2. PREDNISONE TAB [Suspect]

REACTIONS (3)
  - FALL [None]
  - HIP FRACTURE [None]
  - KIDNEY TRANSPLANT REJECTION [None]
